FAERS Safety Report 6441053-9 (Version None)
Quarter: 2009Q4

REPORT INFORMATION
  Report Type: 
  Country: None (occurrence: None)
  Receive Date: 20091116
  Receipt Date: 20091106
  Transmission Date: 20100525
  Serious: Yes (Other)
  Sender: FDA-Public Use
  Company Number: CA-ROCHE-667236

PATIENT
  Age: 21 Year
  Sex: Female

DRUGS (2)
  1. TAMIFLU [Suspect]
     Indication: INFLUENZA
     Route: 048
     Dates: start: 20091028, end: 20091101
  2. TAMIFLU [Suspect]
     Route: 048
     Dates: start: 20091105

REACTIONS (1)
  - URINE OUTPUT DECREASED [None]
